FAERS Safety Report 7179701-0 (Version None)
Quarter: 2010Q4

REPORT INFORMATION
  Report Type: 
  Country: None (occurrence: None)
  Receive Date: 20101209
  Receipt Date: 20101124
  Transmission Date: 20110411
  Serious: Yes (Hospitalization, Other)
  Sender: FDA-Public Use
  Company Number: KV201000234

PATIENT
  Age: 36 Year
  Sex: Female
  Weight: 81.6 kg

DRUGS (14)
  1. MORPHINE SULFATE [Suspect]
     Indication: PAIN
     Dosage: 1-2 TABS Q 4 HOURS PM, ORAL
     Route: 048
     Dates: start: 20080731, end: 20090206
  2. LEVAQUIN [Concomitant]
  3. METRONIDAZOLE [Concomitant]
  4. DETROL LA [Concomitant]
  5. PROPOXYPHENE HCL [Concomitant]
  6. HYDROCHLOROTHIAZIDE [Concomitant]
  7. LYRICA [Concomitant]
  8. DIAZEPAM [Concomitant]
  9. HYDROCODONE W/APAP (HYDROCODONE, PARACETAMOL) [Concomitant]
  10. FUROSEMIDE [Concomitant]
  11. CARISOPRODOL [Concomitant]
  12. GABAPENTIN [Concomitant]
  13. MELOXICAM [Concomitant]
  14. IMITREX /01044801/ (SUMATRIPTAN) [Concomitant]

REACTIONS (43)
  - ABDOMINAL PAIN [None]
  - ANAEMIA [None]
  - ASTHENIA [None]
  - BACK PAIN [None]
  - CARDIAC FAILURE CONGESTIVE [None]
  - CHEST PAIN [None]
  - COLITIS ISCHAEMIC [None]
  - CONFUSIONAL STATE [None]
  - COUGH [None]
  - DEAFNESS UNILATERAL [None]
  - DECREASED APPETITE [None]
  - DEHYDRATION [None]
  - DIZZINESS [None]
  - DRUG SCREEN POSITIVE [None]
  - DYSPNOEA [None]
  - DYSURIA [None]
  - EAR PAIN [None]
  - FATIGUE [None]
  - GAIT DISTURBANCE [None]
  - HAEMATOCHEZIA [None]
  - HAEMOPTYSIS [None]
  - HEADACHE [None]
  - HYPOPERFUSION [None]
  - HYPOTENSION [None]
  - ISCHAEMIA [None]
  - LETHARGY [None]
  - LOCAL SWELLING [None]
  - MENTAL STATUS CHANGES [None]
  - MUSCULAR WEAKNESS [None]
  - MUSCULOSKELETAL PAIN [None]
  - NAUSEA [None]
  - NECK PAIN [None]
  - NOCTURIA [None]
  - OEDEMA PERIPHERAL [None]
  - OROPHARYNGEAL PAIN [None]
  - OVERDOSE [None]
  - PAIN IN EXTREMITY [None]
  - POST PROCEDURAL COMPLICATION [None]
  - PYREXIA [None]
  - RENAL FAILURE ACUTE [None]
  - SLOW RESPONSE TO STIMULI [None]
  - TINNITUS [None]
  - WEIGHT DECREASED [None]
